FAERS Safety Report 5407936-3 (Version None)
Quarter: 2007Q3

REPORT INFORMATION
  Report Type: 
  Country: None (occurrence: None)
  Receive Date: 20070803
  Receipt Date: 20070726
  Transmission Date: 20080115
  Serious: Yes (Hospitalization)
  Sender: FDA-Public Use
  Company Number: TPA2007A01585

PATIENT
  Age: 56 Year
  Sex: Male
  Weight: 101.1521 kg

DRUGS (6)
  1. ACTOS [Suspect]
     Indication: TYPE 2 DIABETES MELLITUS
     Dosage: 30 MG, 1 IN 1 D, PER ORAL
     Route: 048
     Dates: start: 20060701
  2. METFORMIN HCL [Concomitant]
  3. ACCURETIC [Concomitant]
  4. FELODIPINE [Concomitant]
  5. LOVASTATIN [Concomitant]
  6. ATENOLOL [Concomitant]

REACTIONS (7)
  - BLOOD GLUCOSE DECREASED [None]
  - CONDITION AGGRAVATED [None]
  - GASTROINTESTINAL DISORDER [None]
  - GASTROINTESTINAL HAEMORRHAGE [None]
  - JOINT DISLOCATION [None]
  - MUSCULAR WEAKNESS [None]
  - VIRAL INFECTION [None]
